FAERS Safety Report 12119019 (Version 1)
Quarter: 2016Q1

REPORT INFORMATION
  Report Type: Spontaneous
  Country: US (occurrence: None)
  Receive Date: 20160225
  Receipt Date: 20160225
  Transmission Date: 20160526
  Serious: No
  Sender: FDA-Public Use
  Company Number: None

PATIENT
  Sex: Female

DRUGS (10)
  1. ZOLPIDEM [Concomitant]
     Active Substance: ZOLPIDEM\ZOLPIDEM TARTRATE
  2. IBRANCE [Suspect]
     Active Substance: PALBOCICLIB
     Indication: BREAST CANCER
     Route: 048
  3. LETROZOLE. [Concomitant]
     Active Substance: LETROZOLE
  4. MOVIPREP [Concomitant]
     Active Substance: ASCORBIC ACID\POLYETHYLENE GLYCOL 3350\POTASSIUM CHLORIDE\SODIUM ASCORBATE\SODIUM CHLORIDE\SODIUM SULFATE
  5. ANASTROZOLE. [Concomitant]
     Active Substance: ANASTROZOLE
  6. TAMOXIFEN [Concomitant]
     Active Substance: TAMOXIFEN
  7. METHYLPRED [Concomitant]
     Active Substance: METHYLPREDNISOLONE
  8. TOPIRAMATE. [Concomitant]
     Active Substance: TOPIRAMATE
  9. AMITRIPTYLINE [Concomitant]
     Active Substance: AMITRIPTYLINE
  10. TIZANIDINE. [Concomitant]
     Active Substance: TIZANIDINE

REACTIONS (3)
  - Face oedema [None]
  - Pruritus generalised [None]
  - Rash generalised [None]
